FAERS Safety Report 23996860 (Version 1)
Quarter: 2024Q2

REPORT INFORMATION
  Report Type: Spontaneous
  Country: KR (occurrence: KR)
  Receive Date: 20240620
  Receipt Date: 20240620
  Transmission Date: 20240716
  Serious: Yes (Other)
  Sender: FDA-Public Use
  Company Number: KR-AMGEN-KORSP2024119246

PATIENT

DRUGS (1)
  1. REPATHA [Suspect]
     Active Substance: EVOLOCUMAB
     Indication: Deep vein thrombosis
     Dosage: UNK
     Route: 065

REACTIONS (2)
  - Deep vein thrombosis [Unknown]
  - Off label use [Unknown]
